FAERS Safety Report 21155146 (Version 2)
Quarter: 2022Q3

REPORT INFORMATION
  Report Type: Spontaneous
  Country: IN (occurrence: IN)
  Receive Date: 20220801
  Receipt Date: 20220823
  Transmission Date: 20221026
  Serious: Yes (Hospitalization, Other)
  Sender: FDA-Public Use
  Company Number: IN-ALKEM LABORATORIES LIMITED-IN-ALKEM-2022-07899

PATIENT
  Age: 56 Year
  Sex: Female

DRUGS (6)
  1. METOPROLOL SUCCINATE [Suspect]
     Active Substance: METOPROLOL SUCCINATE
     Indication: Coronary artery disease
     Dosage: 25 MILLIGRAM (IN TWO DIVIDED DOSES)
     Route: 065
  2. METOPROLOL SUCCINATE [Suspect]
     Active Substance: METOPROLOL SUCCINATE
     Indication: Acute myocardial infarction
     Dosage: 100 MILLIGRAM/DAY
     Route: 065
  3. ATORVASTATIN CALCIUM [Suspect]
     Active Substance: ATORVASTATIN CALCIUM
     Indication: Acute myocardial infarction
     Dosage: 20 MILLIGRAM ONCE AFTER DINNER
     Route: 065
  4. ASPIRIN [Concomitant]
     Active Substance: ASPIRIN
     Indication: Acute myocardial infarction
     Dosage: UNK, DAILY ONCE AFTER LUNCH
     Route: 048
  5. TICAGRELOR [Concomitant]
     Active Substance: TICAGRELOR
     Indication: Acute myocardial infarction
     Dosage: 90 MILLIGRAM, BID (TWO TIMES AFTER MEALS)
     Route: 065
     Dates: end: 20161228
  6. CLOPIDOGREL [Concomitant]
     Active Substance: CLOPIDOGREL BISULFATE
     Indication: Acute myocardial infarction
     Dosage: UNK, DAILY ONCE AFTER LUNCH
     Route: 048
     Dates: end: 20161228

REACTIONS (4)
  - Liver injury [Recovered/Resolved]
  - Hepatic encephalopathy [Recovered/Resolved]
  - Jaundice [Recovered/Resolved]
  - Myalgia [Unknown]
